FAERS Safety Report 5104890-9 (Version None)
Quarter: 2006Q3

REPORT INFORMATION
  Report Type: 
  Country: None (occurrence: None)
  Receive Date: 20060911
  Receipt Date: 20060911
  Transmission Date: 20061208
  Serious: No
  Sender: FDA-Public Use
  Company Number: None

PATIENT
  Age: 1 Year
  Sex: Female
  Weight: 29.9374 kg

DRUGS (1)
  1. SINGULAIR [Suspect]
     Indication: ASTHMA
     Dosage: 1 TABLET   DAILY   PO
     Route: 048
     Dates: start: 20040201, end: 20060301

REACTIONS (1)
  - OBSESSIVE-COMPULSIVE DISORDER [None]
